FAERS Safety Report 10810764 (Version 1)
Quarter: 2015Q1

REPORT INFORMATION
  Report Type: Spontaneous
  Country: US (occurrence: US)
  Receive Date: 20150217
  Receipt Date: 20150217
  Transmission Date: 20150721
  Serious: No
  Sender: FDA-Public Use
  Company Number: US-ABBVIE-14K-163-1261117-00

PATIENT
  Age: 37 Year
  Sex: Female

DRUGS (3)
  1. HUMIRA [Suspect]
     Active Substance: ADALIMUMAB
     Dosage: STARTING ON DAY 28
     Route: 058
  2. HUMIRA [Suspect]
     Active Substance: ADALIMUMAB
     Indication: PSORIASIS
     Dosage: TWO PENS
     Route: 058
     Dates: start: 20140626, end: 20140626
  3. HUMIRA [Suspect]
     Active Substance: ADALIMUMAB
     Dosage: ONE PEN ON DAY 7
     Route: 058
     Dates: start: 20140702, end: 20140702

REACTIONS (3)
  - Diarrhoea [Recovered/Resolved]
  - Back pain [Recovered/Resolved]
  - Nausea [Recovered/Resolved]

NARRATIVE: CASE EVENT DATE: 2014
